FAERS Safety Report 12519426 (Version 2)
Quarter: 2016Q3

REPORT INFORMATION
  Report Type: Report from Study
  Country: CA (occurrence: CA)
  Receive Date: 20160630
  Receipt Date: 20160719
  Transmission Date: 20161109
  Serious: Yes (Other)
  Sender: FDA-Public Use
  Company Number: CA-JNJFOC-20160600462

PATIENT
  Sex: Female
  Weight: 100 kg

DRUGS (1)
  1. REMICADE [Suspect]
     Active Substance: INFLIXIMAB
     Indication: CROHN^S DISEASE
     Dosage: ONCE EVERY 5 TO 6 WEEKS
     Route: 042

REACTIONS (5)
  - Skin plaque [Not Recovered/Not Resolved]
  - Off label use [Unknown]
  - Cellulitis [Unknown]
  - Abdominal pain [Unknown]
  - Product use issue [Unknown]
